FAERS Safety Report 7383307-8 (Version None)
Quarter: 2011Q1

REPORT INFORMATION
  Report Type: 
  Country: None (occurrence: None)
  Receive Date: 20110325
  Receipt Date: 20110325
  Transmission Date: 20110831
  Serious: Yes (Hospitalization)
  Sender: FDA-Public Use
  Company Number: None

PATIENT
  Age: 72 Year
  Sex: Male
  Weight: 64.9 kg

DRUGS (8)
  1. HYDROCHLOROTHIAZIDE [Concomitant]
  2. LISINOPRIL [Suspect]
     Indication: HYPERTENSION
     Dosage: 10MG DAILY PO  CHRONIC
     Route: 048
  3. GLIPIZIDE [Concomitant]
  4. ASPIRIN [Concomitant]
  5. ENALAPRIL IV [Concomitant]
  6. CELEXA [Concomitant]
  7. METFORMIN HCL [Concomitant]
  8. DILTIAZEM [Concomitant]

REACTIONS (3)
  - ANGIOEDEMA [None]
  - ALCOHOL POISONING [None]
  - MENTAL STATUS CHANGES [None]
